FAERS Safety Report 7370076-0 (Version None)
Quarter: 2011Q1

REPORT INFORMATION
  Report Type: 
  Country: None (occurrence: None)
  Receive Date: 20110323
  Receipt Date: 20110309
  Transmission Date: 20110831
  Serious: Yes (Other)
  Sender: FDA-Public Use
  Company Number: PHEH2008US03314

PATIENT
  Sex: Male
  Weight: 184 kg

DRUGS (55)
  1. PERIDEX [Concomitant]
     Dosage: UNK
  2. HYDROCORT [Concomitant]
  3. APAP TAB [Concomitant]
  4. DOLASETRON [Concomitant]
  5. RELAFEN [Concomitant]
     Dosage: 750 MG EVERY 12 HOURS
  6. PANTOPRAZOLE [Concomitant]
  7. LOPERAMIDE [Concomitant]
  8. ACYCLOVIR [Concomitant]
     Dosage: 200 MG, UNK
  9. ORAMORPH SR [Concomitant]
     Dosage: UNK
  10. REVLIMID [Concomitant]
  11. METRONIDAZOLE [Concomitant]
  12. POTASSIUM CHLORIDE [Concomitant]
  13. LEVOFLOXACIN [Concomitant]
  14. CALCIUM CARBONATE [Concomitant]
  15. ENOXAPARIN [Concomitant]
  16. FAMOTIDINE [Concomitant]
  17. FILGRASTIM [Concomitant]
  18. LISINOPRIL [Concomitant]
     Dosage: 10 MG  DAILY
  19. RADIATION [Concomitant]
     Dosage: UNK
     Dates: start: 20010101
  20. ZOLPIDEM [Concomitant]
  21. ALUMINIUM + MAGNESIUM HYDROXIDE/DIMETICONE [Concomitant]
  22. GELCLAIR                                /UNK/ [Concomitant]
  23. CEFUROXIME [Concomitant]
  24. VANCOMYCIN [Concomitant]
  25. SKELAXIN [Concomitant]
     Dosage: 800 MG, QHS
  26. AREDIA [Suspect]
     Indication: NEOPLASM MALIGNANT
     Dosage: 90 MG, UNK
     Dates: end: 20070901
  27. FLUCONAZOLE [Concomitant]
  28. DOCUSATE SODIUM [Concomitant]
  29. ELAVIL [Concomitant]
     Dosage: UNK
  30. PROCHLORPERAZINE [Concomitant]
  31. TOBRAMYCIN [Concomitant]
  32. ZOMETA [Suspect]
     Indication: NEOPLASM MALIGNANT
     Dosage: 4 MG, UNK
  33. CHLORHEXIDINE GLUCONATE [Concomitant]
  34. DEXAMETHASONE [Concomitant]
  35. CALCIUM GLUCONATE [Concomitant]
  36. WARFARIN [Concomitant]
  37. IMMUNOGLOBULINS [Concomitant]
     Dosage: UNK
     Route: 042
  38. CYTOXAN [Concomitant]
     Dosage: UNK
  39. ALLOPURINOL [Concomitant]
     Dosage: UNK
  40. MELPHALAN [Concomitant]
  41. THALIDOMIDE [Concomitant]
  42. ANUSOL-HC                               /USA/ [Concomitant]
  43. AMOXICILLIN [Concomitant]
     Dosage: 500MG, Q8H
     Route: 048
  44. DECADRON [Concomitant]
     Dosage: 40 MG, QD
  45. PENICILLIN ^GRUNENTHAL^ [Concomitant]
     Dosage: 500 MG, Q6H
     Dates: start: 20080107
  46. MEGESTROL ACETATE [Concomitant]
  47. TEMAZEPAM [Concomitant]
  48. FUROSEMIDE [Concomitant]
  49. DROPERIDOL [Concomitant]
  50. LORAZEPAM [Concomitant]
  51. AMANTADINE HCL [Concomitant]
  52. VELCADE [Concomitant]
     Dosage: UNK
  53. DIFLUCAN [Concomitant]
     Dosage: UNK
  54. NEUPOGEN [Concomitant]
  55. MORPHINE SULFATE [Concomitant]

REACTIONS (74)
  - PULMONARY EMBOLISM [None]
  - ALTERED STATE OF CONSCIOUSNESS [None]
  - HAEMORRHOIDS [None]
  - PROSTATE CANCER [None]
  - DEPRESSION [None]
  - HYPOPHAGIA [None]
  - PROSTATIC SPECIFIC ANTIGEN INCREASED [None]
  - ATELECTASIS [None]
  - STRESS [None]
  - BLOOD PRESSURE DECREASED [None]
  - INTERNATIONAL NORMALISED RATIO INCREASED [None]
  - DEEP VEIN THROMBOSIS [None]
  - BARRETT'S OESOPHAGUS [None]
  - MASS [None]
  - TOOTH DISORDER [None]
  - HIATUS HERNIA [None]
  - METASTASES TO BONE [None]
  - BONE PAIN [None]
  - BACK PAIN [None]
  - SLEEP APNOEA SYNDROME [None]
  - PNEUMONIA [None]
  - INTERSTITIAL LUNG DISEASE [None]
  - LUNG NEOPLASM MALIGNANT [None]
  - EMOTIONAL DISTRESS [None]
  - PHYSICAL DISABILITY [None]
  - HAEMORRHAGE [None]
  - LUNG INFILTRATION [None]
  - COUGH [None]
  - HAEMATOCHEZIA [None]
  - ANXIETY [None]
  - INJURY [None]
  - RADICULOPATHY [None]
  - DIARRHOEA [None]
  - HAEMATURIA [None]
  - MUSCLE SPASMS [None]
  - DIVERTICULUM INTESTINAL [None]
  - METAPLASIA [None]
  - RECURRENT CANCER [None]
  - FISTULA [None]
  - THROMBOCYTOPENIA [None]
  - HYPOXIA [None]
  - MUSCULOSKELETAL PAIN [None]
  - HEPATIC CYST [None]
  - RENAL CYST [None]
  - GASTROOESOPHAGEAL REFLUX DISEASE [None]
  - CARDIOMEGALY [None]
  - LIFE EXPECTANCY SHORTENED [None]
  - GASTROINTESTINAL HAEMORRHAGE [None]
  - HERPES SIMPLEX [None]
  - TOTAL LUNG CAPACITY DECREASED [None]
  - PYREXIA [None]
  - DYSPNOEA [None]
  - HEPATIC LESION [None]
  - ACTINIC KERATOSIS [None]
  - REFLUX OESOPHAGITIS [None]
  - BONE LESION [None]
  - OSTEONECROSIS OF JAW [None]
  - PAIN [None]
  - ANHEDONIA [None]
  - OSTEOMYELITIS [None]
  - HERPES ZOSTER [None]
  - NEPHROLITHIASIS [None]
  - ARTHRALGIA [None]
  - BLADDER DIVERTICULUM [None]
  - RENAL DISORDER [None]
  - PULMONARY FIBROSIS [None]
  - PROTHROMBIN TIME PROLONGED [None]
  - COMPRESSION FRACTURE [None]
  - DISCOMFORT [None]
  - SCAR [None]
  - HAEMORRHOIDAL HAEMORRHAGE [None]
  - RECTAL HAEMORRHAGE [None]
  - DIZZINESS [None]
  - MIGRAINE [None]
